FAERS Safety Report 15571506 (Version 2)
Quarter: 2018Q4

REPORT INFORMATION
  Report Type: Spontaneous
  Country: RU (occurrence: RU)
  Receive Date: 20181031
  Receipt Date: 20181113
  Transmission Date: 20190205
  Serious: Yes (Hospitalization, Other)
  Sender: FDA-Public Use
  Company Number: RU-BRISTOL-MYERS SQUIBB COMPANY-BMS-2018-100916

PATIENT
  Age: 30 Year
  Sex: Female

DRUGS (1)
  1. ELIQUIS [Suspect]
     Active Substance: APIXABAN
     Indication: THROMBOSIS
     Dosage: 2.5 MG, BID
     Route: 065
     Dates: start: 201810, end: 201810

REACTIONS (6)
  - Product use in unapproved indication [Unknown]
  - Conjunctival hyperaemia [Unknown]
  - Hyphaema [Unknown]
  - Retinal haemorrhage [Unknown]
  - Iris neovascularisation [Unknown]
  - Off label use [Unknown]

NARRATIVE: CASE EVENT DATE: 201810
